FAERS Safety Report 24397937 (Version 1)
Quarter: 2024Q4

REPORT INFORMATION
  Report Type: Spontaneous
  Country: US (occurrence: None)
  Receive Date: 20241003
  Receipt Date: 20241003
  Transmission Date: 20250115
  Serious: Yes (Death)
  Sender: Public
  Company Number: None

PATIENT
  Age: 32 Year
  Sex: Male
  Weight: 98.55 kg

DRUGS (1)
  1. HERBALS\MITRAGYNINE [Suspect]
     Active Substance: HERBALS\MITRAGYNINE
     Indication: Pain
     Dates: start: 20240501, end: 20240821

REACTIONS (2)
  - Overdose [None]
  - Substance use [None]

NARRATIVE: CASE EVENT DATE: 20240821
